FAERS Safety Report 6618942-5 (Version None)
Quarter: 2010Q1

REPORT INFORMATION
  Report Type: 
  Country: None (occurrence: None)
  Receive Date: 20100308
  Receipt Date: 20100224
  Transmission Date: 20100710
  Serious: Yes (Congenital Anomaly)
  Sender: FDA-Public Use
  Company Number: US-SANOFI-AVENTIS-2010SA012127

PATIENT
  Age: 0 Day
  Sex: Male

DRUGS (1)
  1. LANTUS [Suspect]
     Route: 050

REACTIONS (4)
  - DOUBLE OUTLET RIGHT VENTRICLE [None]
  - HEART DISEASE CONGENITAL [None]
  - TRANSPOSITION OF THE GREAT VESSELS [None]
  - VENTRICULAR SEPTAL DEFECT [None]
